FAERS Safety Report 5181875-8 (Version None)
Quarter: 2006Q4

REPORT INFORMATION
  Report Type: 
  Country: None (occurrence: None)
  Receive Date: 20061220
  Receipt Date: 20060321
  Transmission Date: 20070319
  Serious: No
  Sender: FDA-Public Use
  Company Number: US-GLAXOSMITHKLINE-A0598334A

PATIENT
  Age: 70 Year
  Sex: Female

DRUGS (2)
  1. COMMIT [Suspect]
  2. EQUATE NICOTINE GUM [Concomitant]

REACTIONS (2)
  - DENTAL CARIES [None]
  - INTENTIONAL DRUG MISUSE [None]
